FAERS Safety Report 25899307 (Version 1)
Quarter: 2025Q4

REPORT INFORMATION
  Report Type: Other
  Country: US (occurrence: US)
  Receive Date: 20251009
  Receipt Date: 20251009
  Transmission Date: 20260117
  Serious: Yes (Other)
  Sender: LYNE LABORATORIES
  Company Number: US-Lyne Laboratories Inc.-2186228

PATIENT
  Age: 49 Year
  Sex: Female

DRUGS (2)
  1. TRIAMCINOLONE ACETONIDE [Suspect]
     Active Substance: TRIAMCINOLONE ACETONIDE
     Indication: Dermatitis
  2. COBICISTAT [Interacting]
     Active Substance: COBICISTAT

REACTIONS (4)
  - Cushing^s syndrome [Unknown]
  - Product use in unapproved indication [Unknown]
  - Drug interaction [Unknown]
  - Adrenal insufficiency [Unknown]
